FAERS Safety Report 4519770-7 (Version None)
Quarter: 2004Q4

REPORT INFORMATION
  Report Type: 
  Country: None (occurrence: None)
  Receive Date: 20041203
  Receipt Date: 20041203
  Transmission Date: 20050328
  Serious: Yes (Death)
  Sender: FDA-Public Use
  Company Number: None

PATIENT
  Age: 50 Year
  Sex: Male
  Weight: 117.9352 kg

DRUGS (8)
  1. ACTIMMUNE [Suspect]
     Indication: PULMONARY FIBROSIS
     Dosage: 200MCG  3X PER WEEK  SUBCUTANEOUS
     Route: 058
     Dates: start: 20040115, end: 20040304
  2. ZOCOR [Concomitant]
  3. DILTIAZEM HCL [Concomitant]
  4. ASPIRIN [Concomitant]
  5. FLONASE [Concomitant]
  6. ALLEGRA [Concomitant]
  7. PREDNISONE [Concomitant]
  8. ZOLOFT [Concomitant]

REACTIONS (8)
  - ACUTE RESPIRATORY FAILURE [None]
  - DYSPNOEA [None]
  - HYPERGLYCAEMIA [None]
  - HYPOXIA [None]
  - PULMONARY FUNCTION TEST DECREASED [None]
  - PYREXIA [None]
  - THROMBOCYTOPENIA [None]
  - WEIGHT DECREASED [None]
